FAERS Safety Report 8906491 (Version 1)
Quarter: 2012Q4

REPORT INFORMATION
  Report Type: Spontaneous
  Country: US (occurrence: None)
  Receive Date: 20121113
  Receipt Date: 20121113
  Transmission Date: 20130627
  Serious: Yes (Other)
  Sender: FDA-Public Use
  Company Number: None

PATIENT
  Age: 50 Year
  Sex: Female
  Weight: 70.31 kg

DRUGS (2)
  1. FEMRING [Suspect]
     Indication: PELVIC PAIN
     Dosage: every 3months
     Dates: start: 20120928, end: 20121008
  2. FEMRING [Suspect]
     Indication: YEAST INFECTION
     Dosage: every 3months
     Dates: start: 20120928, end: 20121008

REACTIONS (4)
  - Pelvic pain [None]
  - Vulvovaginal discomfort [None]
  - Fungal infection [None]
  - Malaise [None]
